FAERS Safety Report 9443511 (Version 2)
Quarter: 2013Q3

REPORT INFORMATION
  Report Type: Spontaneous
  Country: US (occurrence: US)
  Receive Date: 20130806
  Receipt Date: 20130812
  Transmission Date: 20140515
  Serious: Yes (Hospitalization)
  Sender: FDA-Public Use
  Company Number: US-B.I. PHARMACEUTICALS,INC./RIDGEFIELD-2013-BI-23282BP

PATIENT
  Age: 58 Year
  Sex: Female

DRUGS (5)
  1. TRADJENTA [Suspect]
     Indication: TYPE 2 DIABETES MELLITUS
     Dosage: 5 MG
     Route: 048
     Dates: start: 20130116, end: 201307
  2. POTASSIUM [Concomitant]
  3. SYNTHROID [Concomitant]
  4. CYMBALTA [Concomitant]
  5. ACTOS [Concomitant]
     Dosage: 30 MG

REACTIONS (1)
  - Pancreatitis [Unknown]
